FAERS Safety Report 11029255 (Version 5)
Quarter: 2015Q2

REPORT INFORMATION
  Report Type: Report from Study
  Country: CA (occurrence: CA)
  Receive Date: 20150415
  Receipt Date: 20150427
  Transmission Date: 20150821
  Serious: Yes (Hospitalization, Other)
  Sender: FDA-Public Use
  Company Number: CA-ROCHE-1563564

PATIENT
  Age: 80 Year
  Sex: Male

DRUGS (6)
  1. DANAZOL. [Concomitant]
     Active Substance: DANAZOL
     Route: 065
     Dates: start: 201504
  2. RITUXAN [Suspect]
     Active Substance: RITUXIMAB
     Indication: IMMUNE THROMBOCYTOPENIC PURPURA
     Dosage: LAST DOSE OF RITUXAN WAS ON 08-APR-2015
     Route: 042
     Dates: start: 20150401
  3. RITUXAN [Suspect]
     Active Substance: RITUXIMAB
     Dosage: LAST DOSE OF RITUXAN WAS ON 08-APR-2015
     Route: 042
     Dates: start: 20150415
  4. PREDNISONE. [Concomitant]
     Active Substance: PREDNISONE
     Route: 065
     Dates: start: 201504
  5. DEXAMETHASONE. [Concomitant]
     Active Substance: DEXAMETHASONE
  6. TRANEXAMIC ACID. [Concomitant]
     Active Substance: TRANEXAMIC ACID

REACTIONS (7)
  - Infusion related reaction [Unknown]
  - Ocular hyperaemia [Recovering/Resolving]
  - Platelet count decreased [Not Recovered/Not Resolved]
  - Blood blister [Unknown]
  - Haemorrhage [Unknown]
  - Contusion [Unknown]
  - Off label use [Unknown]

NARRATIVE: CASE EVENT DATE: 201504
